FAERS Safety Report 11989935 (Version 1)
Quarter: 2016Q1

REPORT INFORMATION
  Report Type: Spontaneous
  Country: US (occurrence: US)
  Receive Date: 20160202
  Receipt Date: 20160202
  Transmission Date: 20160526
  Serious: No
  Sender: FDA-Public Use
  Company Number: US-ROCHE-1503577

PATIENT
  Age: 15 Year
  Sex: Male

DRUGS (2)
  1. SOMATROPIN [Suspect]
     Active Substance: SOMATROPIN
     Indication: BODY HEIGHT BELOW NORMAL
     Route: 065
  2. ACETAZOLAMIDE. [Concomitant]
     Active Substance: ACETAZOLAMIDE

REACTIONS (2)
  - Product use issue [Unknown]
  - Drug ineffective [Unknown]
